FAERS Safety Report 7928036-4 (Version None)
Quarter: 2011Q4

REPORT INFORMATION
  Report Type: 
  Country: None (occurrence: None)
  Receive Date: 20111118
  Receipt Date: 20111109
  Transmission Date: 20120403
  Serious: Yes (Other)
  Sender: FDA-Public Use
  Company Number: US-BAYER-2011-110482

PATIENT
  Age: 21 Year

DRUGS (8)
  1. YASMIN [Suspect]
     Indication: CONTRACEPTION
     Dosage: UNK
     Dates: start: 20070501
  2. YASMIN [Suspect]
     Indication: PREMENSTRUAL SYNDROME
     Dosage: UNK
     Dates: start: 20070801
  3. NAPROXEN [Concomitant]
     Dosage: UNK
     Dates: start: 20070101
  4. YAZ [Suspect]
     Indication: PREMENSTRUAL SYNDROME
  5. PREVACID [Concomitant]
  6. NAPROSYN [Concomitant]
  7. PERCOCET [Concomitant]
  8. YAZ [Suspect]
     Indication: CONTRACEPTION
     Dosage: UNK
     Dates: start: 20070401, end: 20090501

REACTIONS (4)
  - GALLBLADDER DISORDER [None]
  - ABDOMINAL PAIN [None]
  - CHOLECYSTITIS CHRONIC [None]
  - KELOID SCAR [None]
